FAERS Safety Report 7830403-4 (Version None)
Quarter: 2011Q4

REPORT INFORMATION
  Report Type: 
  Country: None (occurrence: None)
  Receive Date: 20111021
  Receipt Date: 20111011
  Transmission Date: 20120403
  Serious: Yes (Hospitalization)
  Sender: FDA-Public Use
  Company Number: JP-NAPPMUNDI-MAG-2011-0001594

PATIENT
  Sex: Female

DRUGS (10)
  1. OXYCODONE HCL [Suspect]
     Dosage: 15 MG, DAILY
     Route: 048
     Dates: start: 20110708, end: 20110708
  2. PREDNISOLONE [Concomitant]
     Dosage: 15 MG, DAILY
     Route: 048
  3. OXYCODONE HCL [Suspect]
     Indication: CANCER PAIN
     Dosage: 60 MG, DAILY
     Route: 048
     Dates: start: 20110707, end: 20110709
  4. CONFATANIN [Concomitant]
     Dosage: 3 DF, DAILY
     Route: 048
  5. FENTANYL [Concomitant]
     Dosage: 4.2 MG, DAILY
     Route: 062
     Dates: start: 20110707, end: 20110707
  6. REBAMIPIDE [Concomitant]
     Dosage: 3 DF, DAILY
     Route: 048
  7. OXYCODONE HCL [Suspect]
     Dosage: 100 MG, DAILY
     Route: 048
     Dates: start: 20110710, end: 20110710
  8. OXYCODONE HCL [Suspect]
     Indication: CANCER PAIN
     Dosage: 10 MG, DAILY
     Route: 048
     Dates: start: 20110709, end: 20110709
  9. OXYCODONE HCL [Suspect]
     Dosage: 5 MG, DAILY
     Route: 048
     Dates: start: 20110707, end: 20110707
  10. FENTANYL [Concomitant]
     Indication: CANCER PAIN
     Dosage: 8.4 MG, DAILY
     Route: 062
     Dates: start: 20110704, end: 20110704

REACTIONS (1)
  - DELIRIUM [None]
